FAERS Safety Report 11912703 (Version 1)
Quarter: 2016Q1

REPORT INFORMATION
  Report Type: Spontaneous
  Country: US (occurrence: None)
  Receive Date: 20160112
  Receipt Date: 20160112
  Transmission Date: 20160526
  Serious: Yes (Life-Threatening, Disabling)
  Sender: FDA-Public Use
  Company Number: None

PATIENT
  Age: 63 Year
  Sex: Female
  Weight: 52.62 kg

DRUGS (10)
  1. CLONAZEPAM. [Concomitant]
     Active Substance: CLONAZEPAM
  2. SERTRALINE [Concomitant]
     Active Substance: SERTRALINE HYDROCHLORIDE
  3. PREDNISONE. [Concomitant]
     Active Substance: PREDNISONE
  4. CITRACAL + D [Concomitant]
     Active Substance: CALCIUM CITRATE\VITAMIN D
  5. AMLODIPINE [Concomitant]
     Active Substance: AMLODIPINE BESYLATE
  6. FISH OIL [Concomitant]
     Active Substance: FISH OIL
  7. MYFORTIC [Concomitant]
     Active Substance: MYCOPHENOLATE SODIUM
  8. BUDESONIDE MFR MYLAN [Suspect]
     Active Substance: BUDESONIDE
     Indication: COLITIS MICROSCOPIC
     Dosage: TID FOR 3 MO.
     Route: 048
     Dates: start: 20150630, end: 20150930
  9. TACROLIMUS. [Concomitant]
     Active Substance: TACROLIMUS
  10. CARVEDILOL. [Concomitant]
     Active Substance: CARVEDILOL

REACTIONS (13)
  - Contusion [None]
  - Adrenal insufficiency [None]
  - Skin lesion [None]
  - Chills [None]
  - Skin haemorrhage [None]
  - Insomnia [None]
  - Tremor [None]
  - Asthenia [None]
  - Therapy cessation [None]
  - Skin atrophy [None]
  - Syncope [None]
  - Drug monitoring procedure incorrectly performed [None]
  - Respiratory disorder [None]

NARRATIVE: CASE EVENT DATE: 20150930
